FAERS Safety Report 19613430 (Version 1)
Quarter: 2021Q3

REPORT INFORMATION
  Report Type: Spontaneous
  Country: US (occurrence: US)
  Receive Date: 20210726
  Receipt Date: 20210726
  Transmission Date: 20211014
  Serious: Yes (Hospitalization, Disabling)
  Sender: FDA-Public Use
  Company Number: None

PATIENT
  Age: 47 Year
  Sex: Male
  Weight: 139.5 kg

DRUGS (10)
  1. MAGNESIUM (PAIN) [Concomitant]
  2. LYSENE [Concomitant]
  3. CIPROFLOXACIN. [Suspect]
     Active Substance: CIPROFLOXACIN
     Indication: PROSTATITIS
     Dosage: ?          QUANTITY:20 TABLET(S);?
     Route: 048
     Dates: start: 20190729, end: 20190730
  4. ALO BRACE [Concomitant]
  5. CYMBALTA (PAIN) [Concomitant]
  6. MULTIVITAMIN [Concomitant]
     Active Substance: VITAMINS
  7. 4 POST CANE [Concomitant]
  8. NORCO (PAIN) [Concomitant]
  9. FISH OIL [Concomitant]
     Active Substance: FISH OIL
  10. FLOMAX [Concomitant]
     Active Substance: TAMSULOSIN HYDROCHLORIDE

REACTIONS (7)
  - Limb injury [None]
  - Nerve injury [None]
  - Feeling abnormal [None]
  - Tendonitis [None]
  - Dizziness [None]
  - Nausea [None]
  - Cognitive disorder [None]

NARRATIVE: CASE EVENT DATE: 20190730
